FAERS Safety Report 10240166 (Version 1)
Quarter: 2014Q2

REPORT INFORMATION
  Report Type: Spontaneous
  Country: CN (occurrence: CN)
  Receive Date: 20140617
  Receipt Date: 20140617
  Transmission Date: 20141212
  Serious: Yes (Other)
  Sender: FDA-Public Use
  Company Number: CN-ROCHE-1417725

PATIENT
  Age: 62 Year
  Sex: Male
  Weight: 60 kg

DRUGS (2)
  1. XELODA [Suspect]
     Indication: COLON CANCER
     Route: 048
     Dates: start: 20130306, end: 20130320
  2. OXALIPLATIN ACCORD [Concomitant]
     Route: 041

REACTIONS (4)
  - Skin exfoliation [Recovering/Resolving]
  - Wound secretion [Recovering/Resolving]
  - Palmar erythema [Recovering/Resolving]
  - Visual impairment [Recovering/Resolving]
